FAERS Safety Report 9227864 (Version 1)
Quarter: 2013Q1

REPORT INFORMATION
  Report Type: Spontaneous
  Country: US (occurrence: None)
  Receive Date: 20121031
  Receipt Date: 20121031
  Transmission Date: 20140127
  Serious: No
  Sender: FDA-Public Use
  Company Number: PHEH2012US015540

PATIENT
  Age: 45 Year
  Sex: Female
  Weight: 98.4 kg

DRUGS (13)
  1. GILENYA [Suspect]
     Indication: RELAPSING-REMITTING MULTIPLE SCLEROSIS
     Route: 048
     Dates: start: 20120711
  2. ZANAFLEX (TIZANDINE HYDROCHLORIDE) [Concomitant]
  3. ADDERALL (AMFETAMINE ASPARTATE, AMFETAMINE SULFATE, DEXAMFETAMINE SACCHARATE, DEXAMFETAMINE SULFATE) [Concomitant]
  4. TOPAMAX (TOPIRAMATE) [Concomitant]
  5. EFFEXOR (VENLAFAXINE HYDROCHLORIDE) UNKNOWN [Concomitant]
  6. ZESTORETIC (HYDROCHLOROTHIAZIDE, LISINOPRIL) [Concomitant]
  7. KLONOPIN (CLONAZEPAM) (TABLETS) [Concomitant]
  8. SOMA (CARISOPRODOL) [Concomitant]
  9. DURAGESIC (FENTANYL) [Concomitant]
  10. TYLENOL )PARACETAMOL) [Concomitant]
  11. VESICARE (SOLIFENACIN) [Concomitant]
  12. MOBIC (MELOXICAM) [Concomitant]
  13. PREDNISONE (PREDNISONE) [Concomitant]

REACTIONS (4)
  - Osteoarthritis [None]
  - Bone pain [None]
  - Fatigue [None]
  - Therapeutic response decreased [None]
